FAERS Safety Report 21752166 (Version 2)
Quarter: 2022Q4

REPORT INFORMATION
  Report Type: Spontaneous
  Country: IT (occurrence: IT)
  Receive Date: 20221220
  Receipt Date: 20221227
  Transmission Date: 20230113
  Serious: Yes (Hospitalization, Other)
  Sender: FDA-Public Use
  Company Number: IT-ALKEM LABORATORIES LIMITED-IT-ALKEM-2022-14057

PATIENT
  Age: 56 Year
  Sex: Male

DRUGS (3)
  1. TACROLIMUS [Suspect]
     Active Substance: TACROLIMUS
     Indication: Immunosuppressant drug therapy
     Dosage: 3 MILLIGRAM, QD (PER DAY)
     Route: 065
  2. MYCOPHENOLATE MOFETIL [Concomitant]
     Active Substance: MYCOPHENOLATE MOFETIL
     Indication: Immunosuppressant drug therapy
     Dosage: 1 GRAM, QD (PER DAY)
     Route: 065
  3. PREDNISONE [Concomitant]
     Active Substance: PREDNISONE
     Indication: Immunosuppressant drug therapy
     Dosage: 5 MILLIGRAM, QD (PER DAY)
     Route: 065

REACTIONS (8)
  - Purtscher retinopathy [Unknown]
  - Glaucoma [Recovered/Resolved]
  - Retinal ischaemia [Unknown]
  - Retinal vascular disorder [Unknown]
  - Immune-mediated myositis [Unknown]
  - Toxicity to various agents [Unknown]
  - Myositis [Unknown]
  - Renal tubular necrosis [Unknown]
